FAERS Safety Report 4356067-2 (Version None)
Quarter: 2004Q2

REPORT INFORMATION
  Report Type: 
  Country: None (occurrence: None)
  Receive Date: 20040511
  Receipt Date: 20040209
  Transmission Date: 20050107
  Serious: Yes (Hospitalization)
  Sender: FDA-Public Use
  Company Number: US-MERCK-0402USA00734

PATIENT
  Age: 56 Year
  Sex: Male
  Weight: 82 kg

DRUGS (17)
  1. SECTRAL [Suspect]
     Route: 065
     Dates: end: 20020316
  2. TYLENOL (CAPLET) [Concomitant]
     Route: 065
     Dates: start: 20000501
  3. TYLENOL W/ CODEINE [Concomitant]
     Route: 065
  4. XANAX [Concomitant]
     Indication: ANXIETY
     Route: 065
  5. ASPIRIN [Concomitant]
     Route: 065
  6. KEFLEX [Concomitant]
     Route: 065
  7. CIPRO [Concomitant]
     Route: 065
     Dates: start: 20000530
  8. ZESTRIL [Suspect]
     Indication: HYPERTENSION
     Route: 065
     Dates: start: 19840101, end: 20020316
  9. ZESTRIL [Suspect]
     Route: 065
  10. ZESTRIL [Suspect]
     Route: 065
     Dates: start: 20020410
  11. VIOXX [Suspect]
     Indication: PAIN
     Route: 048
     Dates: start: 20020304, end: 20020316
  12. VIOXX [Suspect]
     Route: 048
     Dates: start: 20000501, end: 20000601
  13. VIOXX [Suspect]
     Route: 048
     Dates: start: 20010701
  14. VIOXX [Suspect]
     Indication: LIMB INJURY
     Route: 048
     Dates: start: 20020304, end: 20020316
  15. VIOXX [Suspect]
     Route: 048
     Dates: start: 20000501, end: 20000601
  16. VIOXX [Suspect]
     Route: 048
     Dates: start: 20010701
  17. VITAMIN B COMPLEX [Concomitant]
     Route: 065

REACTIONS (41)
  - ABDOMINAL PAIN UPPER [None]
  - ACCIDENT AT WORK [None]
  - ANOREXIA [None]
  - BACK PAIN [None]
  - BENIGN PROSTATIC HYPERPLASIA [None]
  - BLOOD MAGNESIUM INCREASED [None]
  - CHILLS [None]
  - CHOLELITHIASIS [None]
  - COSTOCHONDRITIS [None]
  - DEHYDRATION [None]
  - DIZZINESS [None]
  - DRY MOUTH [None]
  - EMOTIONAL DISORDER [None]
  - EMOTIONAL DISTRESS [None]
  - EROSIVE DUODENITIS [None]
  - FATIGUE [None]
  - FIBULA FRACTURE [None]
  - FLATULENCE [None]
  - GASTRITIS [None]
  - GASTRITIS EROSIVE [None]
  - GASTROOESOPHAGEAL REFLUX DISEASE [None]
  - HEADACHE [None]
  - HELICOBACTER GASTRITIS [None]
  - HYPERTENSION [None]
  - INTERVERTEBRAL DISC DEGENERATION [None]
  - INTERVERTEBRAL DISC PROTRUSION [None]
  - MUSCLE SPASMS [None]
  - NAUSEA [None]
  - NEPHROSCLEROSIS [None]
  - NEURITIS [None]
  - NEUROPATHY [None]
  - NIGHT CRAMPS [None]
  - OEDEMA PERIPHERAL [None]
  - OSTEOARTHRITIS [None]
  - PROTEINURIA [None]
  - RENAL CYST [None]
  - RENAL FAILURE [None]
  - RENAL FAILURE ACUTE [None]
  - RENAL INJURY [None]
  - TENDONITIS [None]
  - WOUND [None]
